FAERS Safety Report 23366033 (Version 5)
Quarter: 2025Q1

REPORT INFORMATION
  Report Type: Report from Study
  Country: FR (occurrence: FR)
  Receive Date: 20240104
  Receipt Date: 20250109
  Transmission Date: 20250408
  Serious: Yes (Hospitalization)
  Sender: SPRINGWORKS THERAPEUTIC
  Company Number: FR-SPRINGWORKS THERAPEUTICS-SW-001100

PATIENT

DRUGS (4)
  1. NIROGACESTAT [Suspect]
     Active Substance: NIROGACESTAT
     Indication: Desmoid tumour
     Dosage: 150 MILLIGRAM, BID
     Dates: start: 20230921, end: 20231002
  2. NIROGACESTAT [Suspect]
     Active Substance: NIROGACESTAT
     Dosage: 100 MILLIGRAM, BID
     Dates: start: 20231010, end: 20231128
  3. PANCREATINE MYLAN [Concomitant]
     Indication: Pancreaticoduodenectomy
     Dosage: 25000 INTERNATIONAL UNIT, TID
     Dates: start: 20220117
  4. LEVOTHYROXINE [Concomitant]
     Active Substance: LEVOTHYROXINE
     Indication: Hypothyroidism
     Dosage: 62.5 MICROGRAM, QD

REACTIONS (6)
  - Vomiting [Recovered/Resolved]
  - Diarrhoea [Recovered/Resolved]
  - Nausea [Recovered/Resolved]
  - Dehydration [Recovered/Resolved]
  - Urinary tract infection [Recovered/Resolved]
  - Hypokalaemia [Recovered/Resolved]

NARRATIVE: CASE EVENT DATE: 20230922
